FAERS Safety Report 5843002-0 (Version None)
Quarter: 2008Q3

REPORT INFORMATION
  Report Type: 
  Country: None (occurrence: None)
  Receive Date: 20080813
  Receipt Date: 20080731
  Transmission Date: 20090109
  Serious: Yes (Hospitalization)
  Sender: FDA-Public Use
  Company Number: ES-ELI_LILLY_AND_COMPANY-ES200808000294

PATIENT
  Age: 73 Year
  Sex: Female

DRUGS (4)
  1. FORTEO [Suspect]
     Indication: OSTEOPOROSIS
     Dosage: 20 UG, UNKNOWN
     Route: 058
     Dates: start: 20080620, end: 20080717
  2. ANALGESICS [Concomitant]
     Dosage: UNK, UNKNOWN
     Route: 065
  3. PRIMPERAN /00041901/ [Concomitant]
     Dosage: UNK, UNKNOWN
     Route: 065
  4. CALCIUM [Concomitant]
     Dosage: UNK, UNKNOWN
     Route: 065

REACTIONS (4)
  - CEREBRAL VENOUS THROMBOSIS [None]
  - DYSKINESIA [None]
  - HEADACHE [None]
  - SPEECH DISORDER [None]
